FAERS Safety Report 15158851 (Version 1)
Quarter: 2018Q3

REPORT INFORMATION
  Report Type: Spontaneous
  Country: IT (occurrence: IT)
  Receive Date: 20180718
  Receipt Date: 20180718
  Transmission Date: 20181010
  Serious: Yes (Hospitalization)
  Sender: FDA-Public Use
  Company Number: IT-PFIZER INC-2018287957

PATIENT
  Age: 40 Year
  Sex: Male

DRUGS (4)
  1. LEVOXACIN [Suspect]
     Active Substance: LEVOFLOXACIN
     Indication: CANDIDA INFECTION
     Dosage: 1 DF, 1X/DAY
     Route: 048
     Dates: start: 20170702, end: 20170705
  2. DIFLUCAN [Suspect]
     Active Substance: FLUCONAZOLE
     Indication: CANDIDA INFECTION
     Dosage: 1 DF, 1X/DAY
     Route: 048
     Dates: start: 20170629, end: 20170701
  3. DOXAZOSIN MESILATE [Suspect]
     Active Substance: DOXAZOSIN MESYLATE
     Indication: CANDIDA INFECTION
     Dosage: 2 MG, 1X/DAY
     Route: 048
     Dates: start: 20170702, end: 20170705
  4. EUTIROX [Concomitant]
     Active Substance: LEVOTHYROXINE SODIUM
     Dosage: UNK

REACTIONS (2)
  - Rectal haemorrhage [Unknown]
  - Diarrhoea [Unknown]

NARRATIVE: CASE EVENT DATE: 20170702
